FAERS Safety Report 21033599 (Version 1)
Quarter: 2022Q3

REPORT INFORMATION
  Report Type: Spontaneous
  Country: BR (occurrence: BR)
  Receive Date: 20220701
  Receipt Date: 20220701
  Transmission Date: 20221026
  Serious: Yes (Other)
  Sender: FDA-Public Use
  Company Number: BR-PFIZER INC-202200902865

PATIENT
  Age: 42 Year
  Sex: Female

DRUGS (1)
  1. GEODON [Suspect]
     Active Substance: ZIPRASIDONE HYDROCHLORIDE\ZIPRASIDONE MESYLATE
     Dosage: UNK
     Dates: start: 2008

REACTIONS (5)
  - Hepatic necrosis [Unknown]
  - Hepatic cirrhosis [Unknown]
  - Hypothyroidism [Unknown]
  - Renal disorder [Unknown]
  - Visual impairment [Unknown]
